FAERS Safety Report 14207586 (Version 1)
Quarter: 2017Q4

REPORT INFORMATION
  Report Type: Spontaneous
  Country: US (occurrence: US)
  Receive Date: 20171121
  Receipt Date: 20171121
  Transmission Date: 20180321
  Serious: No
  Sender: FDA-Public Use
  Company Number: US-JNJFOC-20171016048

PATIENT
  Sex: Female

DRUGS (10)
  1. IMBRUVICA [Suspect]
     Active Substance: IBRUTINIB
     Indication: CHRONIC LYMPHOCYTIC LEUKAEMIA
     Route: 048
     Dates: start: 20170623
  2. COQ10 [Concomitant]
     Active Substance: UBIDECARENONE
  3. PREDNISONE. [Concomitant]
     Active Substance: PREDNISONE
  4. GABAPENTIN. [Concomitant]
     Active Substance: GABAPENTIN
  5. FISH OIL [Concomitant]
     Active Substance: FISH OIL
  6. CENTRUM SILVER [Concomitant]
     Active Substance: MINERALS\VITAMINS
  7. CITRACAL [Concomitant]
     Active Substance: CALCIUM CITRATE
  8. VALTREX [Concomitant]
     Active Substance: VALACYCLOVIR HYDROCHLORIDE
  9. VITAMIN D [Concomitant]
     Active Substance: CHOLECALCIFEROL
  10. PROLIA [Concomitant]
     Active Substance: DENOSUMAB

REACTIONS (2)
  - Alopecia [Unknown]
  - Sciatica [Unknown]
